FAERS Safety Report 25977858 (Version 1)
Quarter: 2025Q4

REPORT INFORMATION
  Report Type: Spontaneous
  Country: US (occurrence: US)
  Receive Date: 20251030
  Receipt Date: 20251030
  Transmission Date: 20260117
  Serious: No
  Sender: SUNOVION
  Company Number: US-SMPA-2025SPA013852

PATIENT
  Age: 73 Year
  Sex: Female

DRUGS (1)
  1. APTIOM [Suspect]
     Active Substance: ESLICARBAZEPINE ACETATE
     Indication: Product used for unknown indication
     Dosage: 200 MG, QD
     Route: 048

REACTIONS (2)
  - Cough [Unknown]
  - Dysphagia [Unknown]

NARRATIVE: CASE EVENT DATE: 20250101
